FAERS Safety Report 19469387 (Version 1)
Quarter: 2021Q2

REPORT INFORMATION
  Report Type: Spontaneous
  Country: US (occurrence: US)
  Receive Date: 20210629
  Receipt Date: 20210629
  Transmission Date: 20210717
  Serious: No
  Sender: FDA-Public Use
  Company Number: US-BEH-2021133382

PATIENT
  Sex: Female

DRUGS (1)
  1. HIZENTRA [Suspect]
     Active Substance: HUMAN IMMUNOGLOBULIN G
     Indication: HUMORAL IMMUNE DEFECT
     Dosage: UNK, EVERY 5 DAYS
     Route: 058

REACTIONS (7)
  - Pain [Unknown]
  - Burning sensation [Unknown]
  - Injection site pain [Unknown]
  - Urticaria [Unknown]
  - Feeling hot [Unknown]
  - No adverse event [Unknown]
  - Device difficult to use [Unknown]
